FAERS Safety Report 4784313-X (Version None)
Quarter: 2005Q3

REPORT INFORMATION
  Report Type: 
  Country: None (occurrence: None)
  Receive Date: 20050928
  Receipt Date: 20050913
  Transmission Date: 20060218
  Serious: Yes (Hospitalization)
  Sender: FDA-Public Use
  Company Number: 218024

PATIENT
  Sex: Female

DRUGS (2)
  1. AVASTIN [Suspect]
     Dates: start: 20050601, end: 20050701
  2. CYTOXAN [Concomitant]

REACTIONS (3)
  - CENTRAL LINE INFECTION [None]
  - PULMONARY EMBOLISM [None]
  - TUMOUR MARKER INCREASED [None]
